FAERS Safety Report 17853635 (Version 26)
Quarter: 2025Q3

REPORT INFORMATION
  Report Type: Report from Study
  Country: US (occurrence: US)
  Receive Date: 20200602
  Receipt Date: 20250909
  Transmission Date: 20251020
  Serious: Yes (Hospitalization, Other)
  Sender: TAKEDA
  Company Number: US-SHIRE-US202018027

PATIENT
  Sex: Female
  Weight: 72 kg

DRUGS (35)
  1. HUMAN IMMUNOGLOBULIN G [Suspect]
     Active Substance: HUMAN IMMUNOGLOBULIN G
     Indication: Immunodeficiency common variable
     Dosage: 12 GRAM, 1/WEEK
     Dates: start: 20180628
  2. HUMAN IMMUNOGLOBULIN G [Suspect]
     Active Substance: HUMAN IMMUNOGLOBULIN G
     Dosage: 12 GRAM, 1/WEEK
     Dates: start: 20181212
  3. HUMAN IMMUNOGLOBULIN G [Suspect]
     Active Substance: HUMAN IMMUNOGLOBULIN G
     Dosage: 12 GRAM, 1/WEEK
  4. EPINEPHRINE [Concomitant]
     Active Substance: EPINEPHRINE
  5. ACETAMINOPHEN [Concomitant]
     Active Substance: ACETAMINOPHEN
  6. AMLODIPINE BESYLATE [Concomitant]
     Active Substance: AMLODIPINE BESYLATE
  7. MINERALS\VITAMINS [Concomitant]
     Active Substance: MINERALS\VITAMINS
  8. B12 active [Concomitant]
  9. LOSARTAN POTASSIUM [Concomitant]
     Active Substance: LOSARTAN POTASSIUM
  10. CALCIUM\CHOLECALCIFEROL [Concomitant]
     Active Substance: CALCIUM\CHOLECALCIFEROL
  11. HYDROXYCHLOROQUINE SULFATE [Concomitant]
     Active Substance: HYDROXYCHLOROQUINE SULFATE
  12. LIDOCAINE\PRILOCAINE [Concomitant]
     Active Substance: LIDOCAINE\PRILOCAINE
  13. CETIRIZINE HYDROCHLORIDE [Concomitant]
     Active Substance: CETIRIZINE HYDROCHLORIDE
  14. BIOTIN [Concomitant]
     Active Substance: BIOTIN
  15. METFORMIN HYDROCHLORIDE [Concomitant]
     Active Substance: METFORMIN HYDROCHLORIDE
  16. DIPHENHYDRAMINE [Concomitant]
     Active Substance: DIPHENHYDRAMINE
  17. SYNTHROID [Concomitant]
     Active Substance: LEVOTHYROXINE SODIUM
  18. DEXLANSOPRAZOLE [Concomitant]
     Active Substance: DEXLANSOPRAZOLE
  19. VITAMIN K [Concomitant]
     Active Substance: PHYTONADIONE
  20. VITAMIN B COMPLEX [Concomitant]
     Active Substance: CYANOCOBALAMIN\DEXPANTHENOL\NIACINAMIDE\PYRIDOXINE HYDROCHLORIDE\RIBOFLAVIN 5^-PHOSPHATE SODIUM\THIA
  21. MAGNESIUM [Concomitant]
     Active Substance: MAGNESIUM
  22. Natural oil of oregano extract [Concomitant]
  23. MENAQUINONE 6 [Concomitant]
     Active Substance: MENAQUINONE 6
  24. ZYRTEC [Concomitant]
     Active Substance: CETIRIZINE HYDROCHLORIDE
  25. OMEPRAZOLE AND SODIUM BICARBONATE [Concomitant]
     Active Substance: OMEPRAZOLE\SODIUM BICARBONATE
  26. POTASSIUM [Concomitant]
     Active Substance: POTASSIUM
  27. ASPIRIN [Concomitant]
     Active Substance: ASPIRIN
  28. PANTOPRAZOLE SODIUM [Concomitant]
     Active Substance: PANTOPRAZOLE SODIUM
  29. OMEPRAZOLE [Concomitant]
     Active Substance: OMEPRAZOLE
  30. PRALUENT [Concomitant]
     Active Substance: ALIROCUMAB
  31. VITAMIN B COMPLEX [Concomitant]
     Active Substance: CYANOCOBALAMIN\DEXPANTHENOL\NIACINAMIDE\PYRIDOXINE HYDROCHLORIDE\RIBOFLAVIN 5^-PHOSPHATE SODIUM\THIA
  32. B active [Concomitant]
  33. DIPHENHYDRAMINE HYDROCHLORIDE [Concomitant]
     Active Substance: DIPHENHYDRAMINE HYDROCHLORIDE
  34. REPATHA [Concomitant]
     Active Substance: EVOLOCUMAB
  35. LASIX [Concomitant]
     Active Substance: FUROSEMIDE

REACTIONS (33)
  - Intestinal obstruction [Unknown]
  - Haemorrhage [Unknown]
  - Skin cancer [Unknown]
  - Cellulitis [Unknown]
  - Feeding disorder [Not Recovered/Not Resolved]
  - Loss of personal independence in daily activities [Unknown]
  - COVID-19 [Unknown]
  - Nervousness [Unknown]
  - Fall [Unknown]
  - Wound infection [Unknown]
  - Gastrooesophageal reflux disease [Unknown]
  - Weight decreased [Unknown]
  - Allergic cough [Unknown]
  - Bacterial infection [Unknown]
  - Bronchitis [Unknown]
  - Device infusion issue [Unknown]
  - Product dose omission issue [Unknown]
  - Infusion related reaction [Not Recovered/Not Resolved]
  - Asthma [Unknown]
  - Blood glucose increased [Recovering/Resolving]
  - Infusion site haemorrhage [Recovered/Resolved]
  - Agitation [Unknown]
  - Rash pruritic [Unknown]
  - Contusion [Unknown]
  - Infusion site urticaria [Unknown]
  - Balance disorder [Unknown]
  - Cough [Unknown]
  - Pain [Unknown]
  - Malaise [Unknown]
  - Chest discomfort [Unknown]
  - Pruritus [Unknown]
  - Urticaria [Recovering/Resolving]
  - Oedema peripheral [Unknown]
